FAERS Safety Report 5781378-3 (Version None)
Quarter: 2008Q2

REPORT INFORMATION
  Report Type: 
  Country: None (occurrence: None)
  Receive Date: 20080619
  Receipt Date: 20080610
  Transmission Date: 20081010
  Serious: Yes (Death, Other)
  Sender: FDA-Public Use
  Company Number: 163-21880-08060817

PATIENT

DRUGS (2)
  1. REVLIMID [Suspect]
     Indication: MULTIPLE MYELOMA
     Dosage: 25 MG, DAILY ON DAYS 1-21 EVERY 28 DAYS, ORAL, 10 MG, DAILY ON DAYS 1-21 EVERY 28 DAYS, ORAL
     Route: 048
  2. CORTICOSTEROIDS (CORTICOSTEROIDS) [Concomitant]

REACTIONS (13)
  - BONE MARROW TOXICITY [None]
  - CEREBRAL INFARCTION [None]
  - CONSTIPATION [None]
  - DISEASE PROGRESSION [None]
  - FATIGUE [None]
  - GRAFT VERSUS HOST DISEASE [None]
  - HAEMATOTOXICITY [None]
  - INFECTION [None]
  - LEUKOPENIA [None]
  - MUSCLE SPASMS [None]
  - NAUSEA [None]
  - POLYNEUROPATHY [None]
  - THROMBOCYTOPENIA [None]
